FAERS Safety Report 10178752 (Version 1)
Quarter: 2014Q2

REPORT INFORMATION
  Report Type: Spontaneous
  Country: US (occurrence: None)
  Receive Date: 20140516
  Receipt Date: 20140516
  Transmission Date: 20141212
  Serious: Yes (Hospitalization)
  Sender: FDA-Public Use
  Company Number: None

PATIENT
  Age: 17 Year
  Sex: Female
  Weight: 70.9 kg

DRUGS (6)
  1. CASPOFUNGIN [Suspect]
  2. BORTEZOMIB [Concomitant]
  3. CYTARABINE [Concomitant]
  4. DAUNORUBICIN [Concomitant]
  5. ETOPOSIDE [Concomitant]
  6. MITOXANTRONE [Concomitant]

REACTIONS (10)
  - Fall [None]
  - Dizziness postural [None]
  - Echocardiogram abnormal [None]
  - Platelet count decreased [None]
  - Bacterial test positive [None]
  - Escherichia test positive [None]
  - Therapeutic response decreased [None]
  - Pulmonary oedema [None]
  - Hypotension [None]
  - Respiratory distress [None]
